FAERS Safety Report 14775535 (Version 4)
Quarter: 2019Q3

REPORT INFORMATION
  Report Type: Spontaneous
  Country: US (occurrence: US)
  Receive Date: 20180418
  Receipt Date: 20190702
  Transmission Date: 20191004
  Serious: Yes (Other)
  Sender: FDA-Public Use
  Company Number: US-ASTRAZENECA-2018SE46484

PATIENT
  Age: 24777 Day
  Sex: Female
  Weight: 108.9 kg

DRUGS (30)
  1. NEXIUM [Suspect]
     Active Substance: ESOMEPRAZOLE MAGNESIUM
     Indication: ULCER
     Dosage: GENERIC
     Route: 048
  2. PROTONIX [Suspect]
     Active Substance: PANTOPRAZOLE SODIUM
     Indication: ULCER
     Dosage: GENERIC
     Route: 065
     Dates: start: 20080304, end: 200903
  3. MELOXICAM. [Concomitant]
     Active Substance: MELOXICAM
  4. NEXIUM [Suspect]
     Active Substance: ESOMEPRAZOLE MAGNESIUM
     Indication: ULCER
     Route: 048
     Dates: start: 20100625, end: 20140827
  5. TUMS [Concomitant]
     Active Substance: CALCIUM CARBONATE
  6. CLONIDINE. [Concomitant]
     Active Substance: CLONIDINE
  7. LYRICA [Concomitant]
     Active Substance: PREGABALIN
  8. NEXIUM 24HR [Suspect]
     Active Substance: ESOMEPRAZOLE MAGNESIUM
     Route: 048
     Dates: start: 2005, end: 2016
  9. IRON [Concomitant]
     Active Substance: IRON
  10. SPIRIVA [Concomitant]
     Active Substance: TIOTROPIUM BROMIDE MONOHYDRATE
  11. PREMARIN [Concomitant]
     Active Substance: ESTROGENS, CONJUGATED
  12. TRAZODONE [Concomitant]
     Active Substance: TRAZODONE HYDROCHLORIDE
  13. NEXIUM [Suspect]
     Active Substance: ESOMEPRAZOLE MAGNESIUM
     Indication: ULCER
     Dosage: GENERIC
     Route: 065
     Dates: start: 20160118, end: 201604
  14. PREVACID [Suspect]
     Active Substance: LANSOPRAZOLE
     Indication: ULCER
     Route: 065
     Dates: start: 20050512, end: 20050823
  15. PROTONIX [Suspect]
     Active Substance: PANTOPRAZOLE SODIUM
     Indication: ULCER
     Route: 065
     Dates: start: 20050523, end: 201111
  16. VITAMIN B12 [Concomitant]
     Active Substance: CYANOCOBALAMIN
  17. TYLENOL [Concomitant]
     Active Substance: ACETAMINOPHEN
  18. SYMBICORT [Concomitant]
     Active Substance: BUDESONIDE\FORMOTEROL FUMARATE DIHYDRATE
  19. FAMOTIDINE ACID [Concomitant]
  20. ZANTAC [Concomitant]
     Active Substance: RANITIDINE HYDROCHLORIDE
  21. CRESTOR [Concomitant]
     Active Substance: ROSUVASTATIN CALCIUM
  22. METFORMIN [Concomitant]
     Active Substance: METFORMIN HYDROCHLORIDE
  23. NASONEX [Concomitant]
     Active Substance: MOMETASONE FUROATE
  24. FUROSEMIDE. [Concomitant]
     Active Substance: FUROSEMIDE
  25. ASPIRIN. [Concomitant]
     Active Substance: ASPIRIN
  26. AMITIZA [Concomitant]
     Active Substance: LUBIPROSTONE
  27. NEXIUM [Suspect]
     Active Substance: ESOMEPRAZOLE MAGNESIUM
     Indication: ULCER
     Route: 048
     Dates: start: 2005, end: 2016
  28. NEXIUM [Suspect]
     Active Substance: ESOMEPRAZOLE MAGNESIUM
     Indication: ULCER
     Route: 048
     Dates: start: 20060119, end: 201601
  29. PROTONIX [Suspect]
     Active Substance: PANTOPRAZOLE SODIUM
     Indication: ULCER
     Route: 065
     Dates: start: 2005, end: 2016
  30. IRBESARTAN. [Concomitant]
     Active Substance: IRBESARTAN

REACTIONS (6)
  - Acute kidney injury [Not Recovered/Not Resolved]
  - Chronic kidney disease [Not Recovered/Not Resolved]
  - End stage renal disease [Not Recovered/Not Resolved]
  - Renal failure [Unknown]
  - Nephrogenic anaemia [Unknown]
  - Hyperparathyroidism secondary [Unknown]

NARRATIVE: CASE EVENT DATE: 20130117
